FAERS Safety Report 5248172-3 (Version None)
Quarter: 2007Q1

REPORT INFORMATION
  Report Type: 
  Country: None (occurrence: None)
  Receive Date: 20070227
  Receipt Date: 20060428
  Transmission Date: 20070707
  Serious: No
  Sender: FDA-Public Use
  Company Number: US-BRISTOL-MYERS SQUIBB COMPANY-13360359

PATIENT
  Age: 70 Year
  Sex: Male
  Weight: 76 kg

DRUGS (11)
  1. METFORMIN HCL [Suspect]
     Indication: DIABETES MELLITUS NON-INSULIN-DEPENDENT
     Dates: start: 20040101, end: 20051223
  2. LISINOPRIL [Concomitant]
  3. VERAPAMIL [Concomitant]
  4. CENTRUM [Concomitant]
  5. VITAMIN B6 [Concomitant]
  6. VITAMIN B-12 [Concomitant]
  7. FOLIC ACID [Concomitant]
  8. FLAXSEED OIL [Concomitant]
     Dosage: DOSAGE FORM = TABLETS
  9. ALPHAGAN [Concomitant]
     Route: 047
  10. TIMOLOL MALEATE [Concomitant]
     Route: 047
  11. LUMIGAN [Concomitant]
     Route: 047

REACTIONS (1)
  - CREATININE RENAL CLEARANCE INCREASED [None]
